FAERS Safety Report 6201239-5 (Version None)
Quarter: 2009Q2

REPORT INFORMATION
  Report Type: 
  Country: None (occurrence: None)
  Receive Date: 20090526
  Receipt Date: 20090430
  Transmission Date: 20091009
  Serious: No
  Sender: FDA-Public Use
  Company Number: US-BAYER-200919740NA

PATIENT
  Age: 58 Year
  Sex: Male

DRUGS (2)
  1. MAGNEVIST [Suspect]
     Indication: NUCLEAR MAGNETIC RESONANCE IMAGING
     Dosage: AS USED: 20 ML  UNIT DOSE: 20 ML
     Route: 042
     Dates: start: 20090428, end: 20090428
  2. MAGNEVIST [Suspect]
     Dosage: AS USED: 20 ML  UNIT DOSE: 20 ML
     Route: 042
     Dates: start: 20090422, end: 20090422

REACTIONS (3)
  - OEDEMA PERIPHERAL [None]
  - PRURITUS [None]
  - RASH PRURITIC [None]
